FAERS Safety Report 6368310-9 (Version None)
Quarter: 2009Q3

REPORT INFORMATION
  Report Type: 
  Country: None (occurrence: None)
  Receive Date: 20090922
  Receipt Date: 20090915
  Transmission Date: 20100115
  Serious: Yes (Hospitalization)
  Sender: FDA-Public Use
  Company Number: US-KINGPHARMUSA00001-K200901133

PATIENT
  Age: 74 Year
  Sex: Female

DRUGS (8)
  1. ALTACE [Suspect]
     Indication: HYPERTENSION
     Dosage: 1 U, QD
     Route: 048
     Dates: start: 20080101, end: 20090101
  2. GLUCOPHAGE [Suspect]
     Indication: TYPE 2 DIABETES MELLITUS
     Dosage: 1700 MG, UNK
     Route: 048
     Dates: end: 20090101
  3. DAONIL [Concomitant]
     Indication: TYPE 2 DIABETES MELLITUS
     Dosage: 15 MG, UNK
     Route: 048
  4. LASIX [Concomitant]
     Indication: HYPERTENSION
     Dosage: 40 MG, UNK
     Route: 048
  5. DEPAKENE [Concomitant]
     Indication: EPILEPSY
     Dosage: 1000 MG, UNK
     Route: 048
  6. KARDEGIC [Concomitant]
     Dosage: 75 MG, UNK
     Route: 048
  7. PRAVASTATIN [Concomitant]
     Indication: DYSLIPIDAEMIA
     Dosage: 20 MG, UNK
     Route: 048
  8. CORDIPATCH [Concomitant]
     Indication: CORONARY ARTERY DISEASE
     Dosage: 20 MG/24H
     Route: 062

REACTIONS (5)
  - ABDOMINAL PAIN [None]
  - ASTHENIA [None]
  - DIABETES MELLITUS INADEQUATE CONTROL [None]
  - PANCREATITIS ACUTE [None]
  - VOMITING [None]
